FAERS Safety Report 5044394-5 (Version None)
Quarter: 2006Q2

REPORT INFORMATION
  Report Type: 
  Country: None (occurrence: None)
  Receive Date: 20060629
  Receipt Date: 20060621
  Transmission Date: 20061013
  Serious: Yes (Death, Disabling, Other)
  Sender: FDA-Public Use
  Company Number: 2006071265

PATIENT
  Age: 66 Year
  Sex: Female

DRUGS (1)
  1. GABAPENTIN [Suspect]
     Indication: ABDOMINAL PAIN
     Dosage: 1800 MG (600 MG, 3 IN 1 D), ORAL
     Route: 048

REACTIONS (1)
  - BLINDNESS [None]
